FAERS Safety Report 17658126 (Version 1)
Quarter: 2020Q2

REPORT INFORMATION
  Report Type: Spontaneous
  Country: FR (occurrence: FR)
  Receive Date: 20200411
  Receipt Date: 20200411
  Transmission Date: 20200713
  Serious: Yes (Death)
  Sender: FDA-Public Use
  Company Number: NVSC2020FR092065

PATIENT
  Age: 71 Year
  Sex: Male

DRUGS (1)
  1. RITUXIMAB. [Suspect]
     Active Substance: RITUXIMAB
     Indication: PARANEOPLASTIC NEUROLOGICAL SYNDROME
     Dosage: 2 INJECTIONS(DAY 1-15)
     Route: 065
     Dates: start: 20180308

REACTIONS (3)
  - Paraneoplastic neurological syndrome [Fatal]
  - Product use in unapproved indication [Unknown]
  - Condition aggravated [Fatal]
